FAERS Safety Report 7323989-X (Version None)
Quarter: 2011Q1

REPORT INFORMATION
  Report Type: 
  Country: None (occurrence: None)
  Receive Date: 20110301
  Receipt Date: 20110215
  Transmission Date: 20110831
  Serious: Yes (Hospitalization, Other)
  Sender: FDA-Public Use
  Company Number: IT-PFIZER INC-2011041620

PATIENT
  Age: 5 Year
  Sex: Male

DRUGS (2)
  1. IBUPROFEN [Suspect]
     Indication: PYREXIA
     Dosage: UNK
     Route: 065
  2. PARACETAMOL [Suspect]
     Indication: PYREXIA

REACTIONS (5)
  - RENAL FAILURE ACUTE [None]
  - RASH [None]
  - RESPIRATORY FAILURE [None]
  - EPIDERMOLYSIS [None]
  - HYPERPYREXIA [None]
